FAERS Safety Report 6927669-1 (Version None)
Quarter: 2010Q3

REPORT INFORMATION
  Report Type: 
  Country: None (occurrence: None)
  Receive Date: 20100817
  Receipt Date: 20100621
  Transmission Date: 20110219
  Serious: No
  Sender: FDA-Public Use
  Company Number: A0866337A

PATIENT
  Sex: Male

DRUGS (2)
  1. VOTRIENT [Suspect]
     Route: 048
     Dates: start: 20100127
  2. NO CONCURRENT MEDICATION [Concomitant]

REACTIONS (6)
  - DECREASED APPETITE [None]
  - DIARRHOEA [None]
  - FATIGUE [None]
  - HYPERTENSION [None]
  - PAIN [None]
  - RASH [None]
